FAERS Safety Report 8029501-4 (Version None)
Quarter: 2012Q1

REPORT INFORMATION
  Report Type: 
  Country: None (occurrence: None)
  Receive Date: 20120109
  Receipt Date: 20111228
  Transmission Date: 20120608
  Serious: Yes (Hospitalization)
  Sender: FDA-Public Use
  Company Number: 200451

PATIENT
  Sex: Female

DRUGS (3)
  1. AVONEX [Suspect]
     Route: 030
     Dates: start: 19981001, end: 19990901
  2. AVONEX [Suspect]
     Indication: MULTIPLE SCLEROSIS
     Route: 030
     Dates: start: 20000101, end: 20040101
  3. AVONEX [Suspect]
     Route: 030
     Dates: start: 20050101, end: 20070101

REACTIONS (3)
  - ROTATOR CUFF SYNDROME [None]
  - NERVE COMPRESSION [None]
  - FALL [None]
